FAERS Safety Report 8321592-6 (Version None)
Quarter: 2012Q2

REPORT INFORMATION
  Report Type: 
  Country: None (occurrence: None)
  Receive Date: 20120430
  Receipt Date: 20091019
  Transmission Date: 20120825
  Serious: No
  Sender: FDA-Public Use
  Company Number: US-TEVA-2009011647

PATIENT
  Sex: Female

DRUGS (8)
  1. NEXIUM [Concomitant]
  2. RECLAST [Concomitant]
  3. TRAMADOL [Concomitant]
  4. CALCIUM [Concomitant]
  5. TRAZODONE HCL [Concomitant]
  6. NUVIGIL [Suspect]
     Indication: SOMNOLENCE
     Dosage: 150 MILLIGRAM;
     Route: 048
     Dates: start: 20090929, end: 20090929
  7. TYLENOL (CAPLET) [Concomitant]
  8. CLARITIN [Concomitant]

REACTIONS (4)
  - TREMOR [None]
  - CONFUSIONAL STATE [None]
  - TACHYCARDIA [None]
  - LOGORRHOEA [None]
